FAERS Safety Report 6494148-8 (Version None)
Quarter: 2009Q4

REPORT INFORMATION
  Report Type: 
  Country: None (occurrence: None)
  Receive Date: 20091214
  Receipt Date: 20090112
  Transmission Date: 20100525
  Serious: No
  Sender: FDA-Public Use
  Company Number: US-BRISTOL-MYERS SQUIBB COMPANY-14466460

PATIENT
  Age: 46 Year
  Sex: Female
  Weight: 91 kg

DRUGS (2)
  1. ABILIFY [Suspect]
     Indication: BIPOLAR I DISORDER
  2. BLOOD PRESSURE MEDICATION [Concomitant]

REACTIONS (1)
  - ARTHRITIS [None]
